FAERS Safety Report 15096347 (Version 2)
Quarter: 2018Q3

REPORT INFORMATION
  Report Type: Spontaneous
  Country: US (occurrence: US)
  Receive Date: 20180702
  Receipt Date: 20180814
  Transmission Date: 20181010
  Serious: No
  Sender: FDA-Public Use
  Company Number: US-PFIZER INC-2018046018

PATIENT
  Age: 35 Year
  Sex: Male

DRUGS (1)
  1. TESTOSTERONE CIPIONATE [Suspect]
     Active Substance: TESTOSTERONE
     Dosage: 1 ML, UNK (200 MG/ML ? INJECT 1 CC EVERY 2 WEEKS)

REACTIONS (1)
  - Drug ineffective [Unknown]
